FAERS Safety Report 9407887 (Version 2)
Quarter: 2013Q3

REPORT INFORMATION
  Report Type: Spontaneous
  Country: US (occurrence: US)
  Receive Date: 20130718
  Receipt Date: 20130806
  Transmission Date: 20140515
  Serious: Yes (Other)
  Sender: FDA-Public Use
  Company Number: US-PFIZER INC-2013203691

PATIENT
  Age: 36 Year
  Sex: Male
  Weight: 88.44 kg

DRUGS (2)
  1. VIAGRA [Suspect]
     Indication: PENILE VASCULAR DISORDER
     Dosage: 25 MG, 1X/DAY
     Route: 048
     Dates: start: 2009
  2. LOVAZA [Concomitant]
     Dosage: UNK

REACTIONS (2)
  - Angiopathy [Unknown]
  - Off label use [Unknown]
